FAERS Safety Report 5615567-5 (Version None)
Quarter: 2008Q1

REPORT INFORMATION
  Report Type: 
  Country: None (occurrence: None)
  Receive Date: 20080201
  Receipt Date: 20080122
  Transmission Date: 20080703
  Serious: Yes (Hospitalization)
  Sender: FDA-Public Use
  Company Number: 2007BI026454

PATIENT
  Age: 42 Year
  Sex: Female
  Weight: 58.5 kg

DRUGS (7)
  1. TYSABRI [Suspect]
     Indication: MULTIPLE SCLEROSIS
     Dosage: 300 MG; QM; IV
     Route: 042
     Dates: start: 20070917
  2. TIMOFEROL [Concomitant]
  3. OMEPRAZOLE [Concomitant]
  4. ZOLPIDEM [Concomitant]
  5. LOPERAMIDE HCL [Concomitant]
  6. IMOVANE [Concomitant]
  7. BETA BLOCKER [Concomitant]

REACTIONS (5)
  - BLOOD PRESSURE DECREASED [None]
  - BODY TEMPERATURE DECREASED [None]
  - DRUG TOXICITY [None]
  - GLASGOW COMA SCALE ABNORMAL [None]
  - SUICIDE ATTEMPT [None]
